FAERS Safety Report 8890106 (Version 1)
Quarter: 2012Q4

REPORT INFORMATION
  Report Type: 
  Country: CA (occurrence: CA)
  Receive Date: 20121106
  Receipt Date: 20121106
  Transmission Date: 20130627
  Serious: Yes (Other)
  Sender: FDA-Public Use
  Company Number: PHHY2005CA007820

PATIENT
  Sex: Male

DRUGS (2)
  1. SANDOSTATIN LAR [Suspect]
     Indication: CARCINOID TUMOUR
     Dosage: 30 mg, every 4 weeks
     Dates: start: 20051027
  2. CARDIZEM [Concomitant]

REACTIONS (8)
  - Blood pressure increased [Unknown]
  - Blood pressure systolic increased [Unknown]
  - Angina pectoris [Unknown]
  - Chills [Unknown]
  - Hyperhidrosis [Unknown]
  - Nasopharyngitis [Unknown]
  - Bradycardia [Unknown]
  - Heart rate decreased [Unknown]
